FAERS Safety Report 9714332 (Version 1)
Quarter: 2013Q4

REPORT INFORMATION
  Report Type: Spontaneous
  Country: US (occurrence: None)
  Receive Date: 20131122
  Receipt Date: 20131122
  Transmission Date: 20140711
  Serious: No
  Sender: FDA-Public Use
  Company Number: 201311026

PATIENT
  Sex: Female

DRUGS (1)
  1. XIAFLEX [Suspect]
     Indication: DUPUYTREN^S CONTRACTURE
     Dosage: 1 IN 1 D INTRALESIONAL
     Dates: start: 20130611, end: 20130611

REACTIONS (4)
  - Carpal tunnel syndrome [None]
  - Condition aggravated [None]
  - Drug ineffective [None]
  - Pain in extremity [None]
